FAERS Safety Report 16581434 (Version 3)
Quarter: 2019Q3

REPORT INFORMATION
  Report Type: Spontaneous
  Country: JP (occurrence: JP)
  Receive Date: 20190716
  Receipt Date: 20190719
  Transmission Date: 20191004
  Serious: No
  Sender: FDA-Public Use
  Company Number: JP-INCYTE CORPORATION-2019IN007025

PATIENT

DRUGS (1)
  1. JAKAVI [Suspect]
     Active Substance: RUXOLITINIB
     Indication: POLYCYTHAEMIA VERA
     Dosage: UNK
     Route: 048

REACTIONS (7)
  - Insomnia [Unknown]
  - Cystitis [Recovered/Resolved]
  - Nocturia [Recovering/Resolving]
  - Thirst [Unknown]
  - Anxiety [Unknown]
  - Pollakiuria [Recovering/Resolving]
  - Stomatitis [Unknown]
